FAERS Safety Report 23099272 (Version 2)
Quarter: 2024Q1

REPORT INFORMATION
  Report Type: Report from Study
  Country: CO (occurrence: CO)
  Receive Date: 20231024
  Receipt Date: 20240125
  Transmission Date: 20240410
  Serious: Yes (Death, Life-Threatening, Hospitalization, Other)
  Sender: FDA-Public Use
  Company Number: CO-002147023-NVSC2020CO281404

PATIENT

DRUGS (8)
  1. RUXOLITINIB [Suspect]
     Active Substance: RUXOLITINIB
     Indication: Myelofibrosis
     Dosage: 40 MG, BID
     Route: 048
     Dates: start: 20190504
  2. RUXOLITINIB [Suspect]
     Active Substance: RUXOLITINIB
     Dosage: 20 MG, BID (EVERY 12 HOURS)
     Route: 048
     Dates: start: 201906, end: 202009
  3. RUXOLITINIB [Suspect]
     Active Substance: RUXOLITINIB
     Dosage: 20 MG, BID (EVERY 12 HOURS)
     Route: 048
     Dates: start: 202010
  4. RUXOLITINIB [Suspect]
     Active Substance: RUXOLITINIB
     Dosage: UNK UNK, Q12H (EVERY 12 HOURS)
     Route: 048
  5. RUXOLITINIB [Suspect]
     Active Substance: RUXOLITINIB
     Dosage: 40 MG, BID
     Route: 048
     Dates: end: 20231205
  6. LOSARTAN [Suspect]
     Active Substance: LOSARTAN
     Indication: Hypertension
     Dosage: 50 MG, BID (EVERY 12 HOURS)
     Route: 048
  7. LEVOMEPROMAZINE [Concomitant]
     Active Substance: LEVOMEPROMAZINE
     Indication: Somnolence
     Dosage: 10 DRP, QD (ONCE DAILY)
     Route: 048
  8. AMLODIPINE [Concomitant]
     Active Substance: AMLODIPINE BESYLATE
     Indication: Hypertension
     Dosage: UNK, QD (ONCE DAILY)
     Route: 048

REACTIONS (23)
  - Gastrointestinal disorder [Unknown]
  - Dysstasia [Unknown]
  - Cough [Fatal]
  - Feeling abnormal [Unknown]
  - Mobility decreased [Unknown]
  - General physical health deterioration [Unknown]
  - Muscle atrophy [Unknown]
  - Weight decreased [Unknown]
  - Splenomegaly [Unknown]
  - Osteomyelitis [Unknown]
  - Off label use [Unknown]
  - Myelofibrosis [Unknown]
  - Disease recurrence [Unknown]
  - Sarcopenia [Unknown]
  - Illness [Unknown]
  - Skin disorder [Unknown]
  - Crying [Unknown]
  - Pain [Unknown]
  - Spleen disorder [Unknown]
  - Peripheral swelling [Unknown]
  - Varicose ulceration [Unknown]
  - Gait disturbance [Unknown]
  - Asthenia [Unknown]
